FAERS Safety Report 6644783-9 (Version None)
Quarter: 2010Q1

REPORT INFORMATION
  Report Type: 
  Country: None (occurrence: None)
  Receive Date: 20100322
  Receipt Date: 20100312
  Transmission Date: 20100710
  Serious: Yes (Death, Other)
  Sender: FDA-Public Use
  Company Number: US-AMGEN-US332059

PATIENT
  Sex: Male
  Weight: 78 kg

DRUGS (4)
  1. NPLATE [Suspect]
     Indication: IDIOPATHIC THROMBOCYTOPENIC PURPURA
     Route: 058
     Dates: start: 20081002
  2. GLUCOCORTICOIDS [Concomitant]
  3. DANAZOL [Concomitant]
     Dates: start: 20080221, end: 20080705
  4. VINCRISTINE [Concomitant]
     Dates: start: 20080820

REACTIONS (6)
  - DEATH [None]
  - DIZZINESS [None]
  - FALL [None]
  - INSOMNIA [None]
  - NAUSEA [None]
  - PLATELET COUNT DECREASED [None]
